FAERS Safety Report 6758639-4 (Version None)
Quarter: 2010Q2

REPORT INFORMATION
  Report Type: 
  Country: None (occurrence: None)
  Receive Date: 20100607
  Receipt Date: 20100531
  Transmission Date: 20101027
  Serious: Yes (Hospitalization)
  Sender: FDA-Public Use
  Company Number: DE-ROCHE-707342

PATIENT
  Sex: Male
  Weight: 83 kg

DRUGS (6)
  1. TOCILIZUMAB [Suspect]
     Indication: RHEUMATOID ARTHRITIS
     Route: 042
     Dates: start: 20091204, end: 20100301
  2. TOCILIZUMAB [Suspect]
     Dosage: CONTINUING WITH REDUCED DOSAGE, NOS
     Route: 042
     Dates: start: 20100401
  3. ARAVA [Concomitant]
     Indication: RHEUMATOID ARTHRITIS
     Route: 048
     Dates: start: 20080801
  4. PREDNISOLONE [Concomitant]
     Indication: RHEUMATOID ARTHRITIS
     Route: 048
     Dates: start: 20070301
  5. CELEBREX [Concomitant]
     Indication: RHEUMATOID ARTHRITIS
     Route: 048
     Dates: start: 20070301
  6. TAMSULOSIN HCL [Concomitant]
     Route: 048
     Dates: start: 20090701

REACTIONS (2)
  - BRONCHITIS [None]
  - HYPOCHROMIC ANAEMIA [None]
